FAERS Safety Report 9938350 (Version 2)
Quarter: 2014Q1

REPORT INFORMATION
  Report Type: Report from Study
  Country: US (occurrence: US)
  Receive Date: 20140303
  Receipt Date: 20140303
  Transmission Date: 20141002
  Serious: No
  Sender: FDA-Public Use
  Company Number: US-ABBVIE-12P-163-1014827-00

PATIENT
  Age: 57 Year
  Sex: Male
  Weight: 136.2 kg

DRUGS (3)
  1. HUMIRA [Suspect]
     Indication: PSORIASIS
     Route: 058
     Dates: start: 20120828, end: 20121009
  2. HUMIRA [Suspect]
     Route: 058
     Dates: start: 201211
  3. HUMIRA [Suspect]
     Dosage: 80 MG LOADING DOSE
     Route: 058
     Dates: start: 20120821, end: 20120821

REACTIONS (3)
  - Cellulitis [Recovered/Resolved]
  - Skin fissures [Unknown]
  - Psoriasis [Unknown]
